FAERS Safety Report 7000535-1 (Version None)
Quarter: 2010Q3

REPORT INFORMATION
  Report Type: 
  Country: None (occurrence: None)
  Receive Date: 20100920
  Receipt Date: 20070823
  Transmission Date: 20110219
  Serious: Yes (Other)
  Sender: FDA-Public Use
  Company Number: US-ASTRAZENECA-2006UW26284

PATIENT
  Sex: Female
  Weight: 122.5 kg

DRUGS (10)
  1. SEROQUEL [Suspect]
     Indication: OBSESSIVE-COMPULSIVE DISORDER
     Dosage: 200-1000MG
     Route: 048
     Dates: start: 19980101, end: 20030101
  2. SEROQUEL [Suspect]
     Dosage: 200MG-1000MG
     Route: 048
     Dates: end: 20040101
  3. ABILIFY [Concomitant]
     Dates: start: 20010101
  4. HALDOL [Concomitant]
     Dates: start: 19960101
  5. RISPERDAL [Concomitant]
     Dates: start: 20000101
  6. ZYPREXA [Concomitant]
  7. MANY OTHERS UNSPECIFIED [Concomitant]
  8. PROZAC [Concomitant]
     Dates: start: 20000101
  9. TRAZODONE HCL [Concomitant]
     Dates: start: 20000101
  10. DEPAKOTE [Concomitant]
     Dates: start: 20000101

REACTIONS (1)
  - PANCREATITIS [None]
